FAERS Safety Report 6614205-2 (Version None)
Quarter: 2010Q1

REPORT INFORMATION
  Report Type: 
  Country: None (occurrence: None)
  Receive Date: 20100304
  Receipt Date: 20100219
  Transmission Date: 20100710
  Serious: Yes (Other)
  Sender: FDA-Public Use
  Company Number: FR-PFIZER INC-2010022546

PATIENT
  Age: 72 Year
  Sex: Male

DRUGS (3)
  1. ZYVOXID [Suspect]
     Dosage: UNK
  2. RIFADIN [Concomitant]
  3. GLUCOPHAGE [Concomitant]

REACTIONS (1)
  - RENAL FAILURE ACUTE [None]
